FAERS Safety Report 9324400 (Version 1)
Quarter: 2013Q2

REPORT INFORMATION
  Report Type: Spontaneous
  Country: CA (occurrence: CA)
  Receive Date: 20130603
  Receipt Date: 20130603
  Transmission Date: 20140414
  Serious: Yes (Death)
  Sender: FDA-Public Use
  Company Number: CA-TEVA-409549USA

PATIENT
  Age: 56 Year
  Sex: Male
  Weight: 68.1 kg

DRUGS (3)
  1. CITALOPRAM [Suspect]
     Dosage: 40 MILLIGRAM DAILY;
     Route: 048
  2. ZOPICLONE [Suspect]
     Dosage: 7.5 MILLIGRAM DAILY;
     Route: 065
  3. ETHANOL [Concomitant]

REACTIONS (2)
  - Brain death [Fatal]
  - Completed suicide [Fatal]
